FAERS Safety Report 18797342 (Version 2)
Quarter: 2021Q1

REPORT INFORMATION
  Report Type: Spontaneous
  Country: JP (occurrence: JP)
  Receive Date: 20210127
  Receipt Date: 20210209
  Transmission Date: 20210419
  Serious: Yes (Other)
  Sender: FDA-Public Use
  Company Number: JP-BRISTOL-MYERS SQUIBB COMPANY-BMS-2021-007267

PATIENT
  Sex: Female

DRUGS (3)
  1. CORTICOSTEROIDS, DERMATOLOGICAL PREPARATIONS [Concomitant]
     Active Substance: UNSPECIFIED INGREDIENT
     Indication: RHEUMATOID ARTHRITIS
     Dosage: UNK
     Route: 065
  2. ORENCIA [Suspect]
     Active Substance: ABATACEPT
     Indication: RHEUMATOID ARTHRITIS
     Dosage: UNK, QWK
     Route: 065
  3. CORTICOSTEROIDS, DERMATOLOGICAL PREPARATIONS [Concomitant]
     Active Substance: UNSPECIFIED INGREDIENT
     Dosage: 5 MILLIGRAM
     Route: 048

REACTIONS (4)
  - Hypoaesthesia [Unknown]
  - Haematuria [Unknown]
  - Nephrolithiasis [Unknown]
  - Dyspnoea [Unknown]
